FAERS Safety Report 10018908 (Version 3)
Quarter: 2014Q2

REPORT INFORMATION
  Report Type: Report from Study
  Country: TW (occurrence: TW)
  Receive Date: 20140318
  Receipt Date: 20140429
  Transmission Date: 20141212
  Serious: Yes (Hospitalization)
  Sender: FDA-Public Use
  Company Number: TW-JNJFOC-20140306618

PATIENT
  Age: 88 Year
  Sex: Male

DRUGS (38)
  1. XARELTO [Suspect]
     Indication: ATRIAL FIBRILLATION
     Route: 048
     Dates: start: 20130904, end: 20131226
  2. XARELTO [Suspect]
     Indication: CEREBROVASCULAR ACCIDENT PROPHYLAXIS
     Route: 048
     Dates: start: 20130904, end: 20131226
  3. FAMOTIDINE [Concomitant]
     Route: 065
     Dates: start: 20130919, end: 20130919
  4. FOLIC ACID [Concomitant]
     Route: 065
     Dates: start: 20130717
  5. RABEPRAZOLE [Concomitant]
     Route: 065
     Dates: start: 20130828
  6. DIFENHYDRAMIN [Concomitant]
     Route: 065
     Dates: start: 20130915, end: 20130916
  7. KCL [Concomitant]
     Dosage: 0.149%
     Route: 065
     Dates: start: 20130915, end: 20130919
  8. TRANEXAMIC ACID [Concomitant]
     Route: 065
     Dates: start: 20130915, end: 20130915
  9. TRANEXAMIC ACID [Concomitant]
     Route: 065
     Dates: start: 20130916, end: 20130916
  10. TRANEXAMIC ACID [Concomitant]
     Route: 065
     Dates: start: 20131012, end: 20131012
  11. TRANEXAMIC ACID [Concomitant]
     Route: 065
     Dates: start: 20131012, end: 20131012
  12. ESOMEPRAZOLE [Concomitant]
     Route: 065
     Dates: start: 20130915, end: 20130918
  13. CARVEDILOL [Concomitant]
     Route: 048
     Dates: start: 20130828
  14. DIGOXIN [Concomitant]
     Route: 048
     Dates: start: 20130828
  15. FERRIC HYDROXIDE POLYMALTOSE [Concomitant]
     Route: 048
     Dates: start: 20130619
  16. FUROSEMIDE [Concomitant]
     Route: 065
     Dates: start: 20130430
  17. LOSARTAN [Concomitant]
     Route: 065
     Dates: start: 20130828
  18. PROPYLTHIOURACIL [Concomitant]
     Route: 065
     Dates: start: 20060105
  19. POTASSIUM CHLORIDE [Concomitant]
     Route: 065
     Dates: start: 20130828
  20. MEPENZOLATE [Concomitant]
     Route: 065
     Dates: start: 20130717, end: 20130827
  21. CO-DIOVAN [Concomitant]
     Route: 065
     Dates: start: 20130605, end: 20130827
  22. DIOKTAEDRISCHER SMEKTIT [Concomitant]
     Route: 065
     Dates: start: 20130919, end: 20130919
  23. SPIRONOLACTONE [Concomitant]
     Route: 065
     Dates: start: 20130605
  24. ALVERINE CITRATE [Concomitant]
     Route: 065
     Dates: start: 20131030, end: 20131127
  25. ALVERINE CITRATE [Concomitant]
     Route: 065
     Dates: start: 20130828
  26. LORAZEPAM [Concomitant]
     Route: 065
     Dates: start: 20131221, end: 20131221
  27. DICYCLOMINE [Concomitant]
     Route: 065
     Dates: start: 20131012, end: 20131012
  28. PIRACETAM [Concomitant]
     Route: 065
     Dates: start: 20131221, end: 20131224
  29. PIRACETAM [Concomitant]
     Route: 065
     Dates: start: 20131224, end: 20140102
  30. ASPIRIN [Concomitant]
     Route: 065
     Dates: start: 20131221, end: 20131221
  31. MAGNESIUM OXIDE [Concomitant]
     Route: 065
     Dates: start: 20131221, end: 20131224
  32. CLOPIDOGREL [Concomitant]
     Route: 065
     Dates: start: 20131221, end: 20131224
  33. HALOPERIDOL [Concomitant]
     Route: 065
     Dates: start: 20131227, end: 20131227
  34. HALOPERIDOL [Concomitant]
     Route: 065
     Dates: start: 20131221, end: 20131221
  35. SENNOSIDE [Concomitant]
     Route: 065
     Dates: start: 20131221, end: 20131228
  36. CYPROHEPTADINE [Concomitant]
     Route: 065
     Dates: start: 20131224, end: 20131224
  37. DILTIAZEM [Concomitant]
     Route: 065
     Dates: start: 20131230, end: 20140102
  38. DABIGATRAN [Concomitant]
     Route: 065
     Dates: start: 20131231, end: 20140102

REACTIONS (2)
  - Ischaemic stroke [Recovering/Resolving]
  - Cerebral infarction [Recovering/Resolving]
